FAERS Safety Report 6274503-1 (Version None)
Quarter: 2009Q3

REPORT INFORMATION
  Report Type: 
  Country: None (occurrence: None)
  Receive Date: 20090720
  Receipt Date: 20090709
  Transmission Date: 20100115
  Serious: Yes (Hospitalization, Other)
  Sender: FDA-Public Use
  Company Number: US-BAXTER-2009BH010898

PATIENT
  Age: 20 Year
  Sex: Female

DRUGS (1)
  1. DIANEAL [Suspect]
     Indication: PERITONEAL DIALYSIS
     Route: 033
     Dates: start: 20070612, end: 20090701

REACTIONS (3)
  - CALCIPHYLAXIS [None]
  - PERITONITIS [None]
  - PERITONITIS BACTERIAL [None]
